FAERS Safety Report 8840460 (Version 1)
Quarter: 2012Q4

REPORT INFORMATION
  Report Type: 
  Country: US (occurrence: US)
  Receive Date: 20121015
  Receipt Date: 20121015
  Transmission Date: 20130627
  Serious: Yes (Other)
  Sender: FDA-Public Use
  Company Number: US-ROCHE-1140910

PATIENT
  Sex: Male
  Weight: 52.44 kg

DRUGS (5)
  1. NUTROPIN AQ [Suspect]
     Indication: HYPOPITUITARISM
     Route: 058
     Dates: end: 200006
  2. CATAPRES [Concomitant]
     Route: 065
  3. DEXEDRINE [Concomitant]
  4. CELEXA [Concomitant]
     Route: 065
  5. CORTISPORIN OTIC [Concomitant]

REACTIONS (4)
  - Otorrhoea [Unknown]
  - Drug ineffective [Unknown]
  - Drug dose omission [Unknown]
  - Anger [Unknown]
